FAERS Safety Report 7553562-X (Version None)
Quarter: 2011Q2

REPORT INFORMATION
  Report Type: 
  Country: None (occurrence: None)
  Receive Date: 20110617
  Receipt Date: 20110603
  Transmission Date: 20111010
  Serious: Yes (Death, Hospitalization)
  Sender: FDA-Public Use
  Company Number: JP-JNJFOC-20110509801

PATIENT
  Sex: Female
  Weight: 46 kg

DRUGS (11)
  1. REMICADE [Suspect]
     Route: 042
     Dates: start: 20100611
  2. REBAMIPIDE [Concomitant]
     Indication: GASTROINTESTINAL DISORDER THERAPY
     Route: 048
     Dates: start: 20110402
  3. REBAMIPIDE [Concomitant]
     Route: 048
     Dates: start: 20110402
  4. CELECOXIB [Concomitant]
     Indication: RHEUMATOID ARTHRITIS
     Route: 048
     Dates: end: 20110512
  5. REMICADE [Suspect]
     Indication: RHEUMATOID ARTHRITIS
     Dosage: 28TH DOSE
     Route: 042
     Dates: start: 20110414
  6. AZULFIDINE [Suspect]
     Route: 048
     Dates: end: 20110512
  7. REMICADE [Suspect]
     Dosage: FIRST DOSE
     Route: 042
     Dates: start: 20060718
  8. REMICADE [Suspect]
     Route: 042
     Dates: start: 20100401
  9. CELECOXIB [Concomitant]
     Route: 048
     Dates: end: 20110512
  10. AZULFIDINE [Suspect]
     Indication: RHEUMATOID ARTHRITIS
     Route: 048
     Dates: end: 20110512
  11. METHOTREXATE [Suspect]
     Indication: RHEUMATOID ARTHRITIS
     Route: 048
     Dates: start: 20030801, end: 20110505

REACTIONS (4)
  - HEPATORENAL SYNDROME [None]
  - HAEMATOCHEZIA [None]
  - PNEUMONIA [None]
  - HEART RATE INCREASED [None]
